FAERS Safety Report 8574105-8 (Version None)
Quarter: 2012Q3

REPORT INFORMATION
  Report Type: 
  Country: None (occurrence: None)
  Receive Date: 20120806
  Receipt Date: 20120801
  Transmission Date: 20120928
  Serious: Yes (Hospitalization, Other)
  Sender: FDA-Public Use
  Company Number: PHHY2012MA001757

PATIENT
  Age: 31 Year
  Sex: Male

DRUGS (1)
  1. MEFLOQUINE HYDROCHLORIDE [Suspect]
     Indication: MALARIA PROPHYLAXIS
     Dosage: 250 MG, QW

REACTIONS (8)
  - RESTLESSNESS [None]
  - PSYCHOMOTOR HYPERACTIVITY [None]
  - LOGORRHOEA [None]
  - DELIRIUM [None]
  - HALLUCINATION, AUDITORY [None]
  - AGITATION [None]
  - MOOD ALTERED [None]
  - FLIGHT OF IDEAS [None]
